FAERS Safety Report 5460217-4 (Version None)
Quarter: 2007Q3

REPORT INFORMATION
  Report Type: 
  Country: None (occurrence: None)
  Receive Date: 20070919
  Receipt Date: 20070608
  Transmission Date: 20080115
  Serious: No
  Sender: FDA-Public Use
  Company Number: US-ASTRAZENECA-2007UW13804

PATIENT
  Age: 70 Year
  Sex: Female
  Weight: 117.5 kg

DRUGS (4)
  1. SEROQUEL [Suspect]
     Indication: DEPRESSION
     Route: 048
     Dates: start: 20060601
  2. SEROQUEL [Suspect]
     Indication: ANXIETY
     Route: 048
     Dates: start: 20060601
  3. KLONOPIN [Concomitant]
  4. CYMBALTA [Concomitant]

REACTIONS (2)
  - HYPOTENSION [None]
  - SCAR [None]
